FAERS Safety Report 5296685-0 (Version None)
Quarter: 2007Q2

REPORT INFORMATION
  Report Type: 
  Country: None (occurrence: None)
  Receive Date: 20070413
  Receipt Date: 20070409
  Transmission Date: 20071010
  Serious: Yes (Death, Hospitalization)
  Sender: FDA-Public Use
  Company Number: US-GENENTECH-230655

PATIENT
  Sex: Male
  Weight: 82.54 kg

DRUGS (7)
  1. AVASTIN [Suspect]
     Indication: NON-SMALL CELL LUNG CANCER
     Dosage: 15 MG/KG, UNK
     Route: 065
     Dates: start: 20060616
  2. CARBOPLATIN [Concomitant]
     Indication: NON-SMALL CELL LUNG CANCER
     Dosage: 6 AUC, UNK
     Route: 065
     Dates: start: 20060619
  3. GEMZAR [Concomitant]
     Indication: NON-SMALL CELL LUNG CANCER
     Dosage: 850 MG/M2, UNK
     Route: 065
     Dates: start: 20060616
  4. DILTIAZEM [Concomitant]
     Indication: DRUG USE FOR UNKNOWN INDICATION
     Dosage: 120 MG, PRN
     Route: 065
  5. VICODIN [Concomitant]
     Indication: DRUG USE FOR UNKNOWN INDICATION
     Route: 065
  6. ATIVAN [Concomitant]
     Indication: NAUSEA
     Route: 065
  7. COMBIVENT [Concomitant]
     Indication: DYSPNOEA
     Dosage: 1 PUFF, QID
     Route: 055

REACTIONS (2)
  - PAIN [None]
  - PULMONARY HAEMORRHAGE [None]
